FAERS Safety Report 5392404-8 (Version None)
Quarter: 2007Q3

REPORT INFORMATION
  Report Type: 
  Country: None (occurrence: None)
  Receive Date: 20070720
  Receipt Date: 20070713
  Transmission Date: 20080115
  Serious: Yes (Other)
  Sender: FDA-Public Use
  Company Number: B0477893A

PATIENT
  Age: 13 Year
  Sex: Male

DRUGS (1)
  1. MALARONE [Suspect]
     Indication: PROPHYLAXIS
     Route: 048
     Dates: start: 20070101, end: 20070101

REACTIONS (2)
  - CONVULSION [None]
  - GRAND MAL CONVULSION [None]
